FAERS Safety Report 12009296 (Version 1)
Quarter: 2016Q1

REPORT INFORMATION
  Report Type: Spontaneous
  Country: CA (occurrence: None)
  Receive Date: 20160204
  Receipt Date: 20160204
  Transmission Date: 20160526
  Serious: Yes (Other)
  Sender: FDA-Public Use
  Company Number: None

PATIENT
  Age: 44 Year
  Sex: Female
  Weight: 81.65 kg

DRUGS (3)
  1. CANESORAL COMBIPAK [Suspect]
     Active Substance: CLOTRIMAZOLE\FLUCONAZOLE
     Indication: CANDIDA INFECTION
     Route: 062
  2. MONISTAT 3 COMBINATION PACK [Suspect]
     Active Substance: MICONAZOLE NITRATE
     Indication: CANDIDA INFECTION
     Route: 062
     Dates: start: 20160105, end: 201601
  3. ORAL ANTIBIOTICS [Concomitant]
     Active Substance: UNSPECIFIED INGREDIENT

REACTIONS (7)
  - Application site swelling [None]
  - Application site pain [None]
  - Application site discomfort [None]
  - Pain [None]
  - Application site reaction [None]
  - Blister [None]
  - Application site erythema [None]

NARRATIVE: CASE EVENT DATE: 20160105
